FAERS Safety Report 18188849 (Version 1)
Quarter: 2020Q3

REPORT INFORMATION
  Report Type: Spontaneous
  Country: US (occurrence: US)
  Receive Date: 20200824
  Receipt Date: 20200824
  Transmission Date: 20201103
  Serious: No
  Sender: FDA-Public Use
  Company Number: US-BAYER-2020-174567

PATIENT
  Sex: Female
  Weight: 31.75 kg

DRUGS (3)
  1. NIFEDIPINE. [Concomitant]
     Active Substance: NIFEDIPINE
     Dosage: UNK
  2. ADEMPAS [Suspect]
     Active Substance: RIOCIGUAT
     Dosage: UNK
  3. REMODULIN [Suspect]
     Active Substance: TREPROSTINIL
     Dosage: 51 NG/KG/M IN
     Route: 058
     Dates: start: 20161021

REACTIONS (2)
  - Incorrect product administration duration [None]
  - Drug ineffective [None]
